FAERS Safety Report 8229255-2 (Version None)
Quarter: 2012Q1

REPORT INFORMATION
  Report Type: 
  Country: None (occurrence: None)
  Receive Date: 20120322
  Receipt Date: 20120315
  Transmission Date: 20120608
  Serious: Yes (Other)
  Sender: FDA-Public Use
  Company Number: US-JNJFOC-20120309220

PATIENT
  Age: 36 Year
  Sex: Female

DRUGS (3)
  1. INVEGA SUSTENNA [Suspect]
     Route: 030
  2. INVEGA SUSTENNA [Suspect]
     Indication: PRODUCT USED FOR UNKNOWN INDICATION
     Route: 030
  3. UNKNOWN MEDICATION [Concomitant]
     Route: 065

REACTIONS (4)
  - DELUSION [None]
  - NERVOUSNESS [None]
  - CARDIAC DISORDER [None]
  - BRADYCARDIA [None]
